FAERS Safety Report 14769888 (Version 1)
Quarter: 2018Q2

REPORT INFORMATION
  Report Type: Spontaneous
  Country: FR (occurrence: FR)
  Receive Date: 20180417
  Receipt Date: 20180417
  Transmission Date: 20180711
  Serious: Yes (Other)
  Sender: FDA-Public Use
  Company Number: FR-BAYER-2018-068529

PATIENT
  Age: 67 Year
  Sex: Male

DRUGS (2)
  1. UREA. [Concomitant]
     Active Substance: UREA
     Dosage: UNK
  2. REGORAFENIB. [Suspect]
     Active Substance: REGORAFENIB
     Indication: ADENOCARCINOMA OF COLON
     Dosage: 160 MG, QD
     Dates: start: 2017, end: 2017

REACTIONS (2)
  - Adenocarcinoma of colon [None]
  - Palmar-plantar erythrodysaesthesia syndrome [None]

NARRATIVE: CASE EVENT DATE: 201712
